FAERS Safety Report 9844373 (Version 2)
Quarter: 2014Q1

REPORT INFORMATION
  Report Type: Spontaneous
  Country: US (occurrence: US)
  Receive Date: 20140127
  Receipt Date: 20140224
  Transmission Date: 20141002
  Serious: Yes (Hospitalization)
  Sender: FDA-Public Use
  Company Number: CHPA2014US001095

PATIENT
  Age: 75 Year
  Sex: Female

DRUGS (2)
  1. EX-LAX REG STR LAX PILLS SENNA [Suspect]
     Indication: BOWEL MOVEMENT IRREGULARITY
     Dosage: 3 DF, UNK
     Route: 048
     Dates: start: 20140116
  2. EX-LAX MAX STR LAX PILLS SENNA [Suspect]
     Indication: BOWEL MOVEMENT IRREGULARITY
     Dosage: 2 DF, QHS
     Dates: start: 2002, end: 2013

REACTIONS (7)
  - Fall [Recovered/Resolved]
  - Back disorder [Not Recovered/Not Resolved]
  - Pain in extremity [Not Recovered/Not Resolved]
  - Back pain [Not Recovered/Not Resolved]
  - Disease recurrence [Not Recovered/Not Resolved]
  - Therapeutic response decreased [Unknown]
  - Incorrect drug administration duration [Unknown]
